FAERS Safety Report 16846347 (Version 6)
Quarter: 2021Q1

REPORT INFORMATION
  Report Type: Spontaneous
  Country: US (occurrence: US)
  Receive Date: 20190924
  Receipt Date: 20210325
  Transmission Date: 20210419
  Serious: No
  Sender: FDA-Public Use
  Company Number: US-PFIZER INC-2019407280

PATIENT
  Age: 69 Year
  Sex: Female
  Weight: 68 kg

DRUGS (12)
  1. CLONAZEPAM. [Concomitant]
     Active Substance: CLONAZEPAM
     Indication: ANXIETY
     Dosage: 1 MG, 3X/DAY(1MG THREE TIMES DAILY, AS NEEDED)
     Dates: start: 1999
  2. AMLODIPINE [Concomitant]
     Active Substance: AMLODIPINE BESYLATE
     Indication: BLOOD PRESSURE INCREASED
     Dosage: 10 MG, 1X/DAY (10MG AT BEDTIME)
     Dates: start: 2015
  3. PRAVASTATIN. [Concomitant]
     Active Substance: PRAVASTATIN
     Indication: BLOOD CHOLESTEROL ABNORMAL
     Dosage: UNK
  4. ELIQUIS [Concomitant]
     Active Substance: APIXABAN
     Indication: ATRIAL FIBRILLATION
     Dosage: 5 MG, 2X/DAY
     Dates: start: 201911
  5. GABAPENTIN. [Suspect]
     Active Substance: GABAPENTIN
     Indication: INTERVERTEBRAL DISC DISORDER
     Dosage: 300 MG, 2X/DAY
     Route: 048
  6. GABAPENTIN. [Suspect]
     Active Substance: GABAPENTIN
     Dosage: 6 DF, 4X/DAY [400 MG, 1 CAPSULE 3 TIMES A DAY, 3 CAPSULES AT BEDTIME, ORALLY, 4 TIMES A DAY]
     Route: 048
  7. NEFAZODONE [Concomitant]
     Active Substance: NEFAZODONE
     Indication: DEPRESSION
     Dosage: 150 MG, 2X/DAY
     Dates: start: 1999
  8. PROLIA [Concomitant]
     Active Substance: DENOSUMAB
     Indication: OSTEOPOROSIS
     Dosage: UNK(TWICE YEARLY INJECTION)
  9. LISINOPRIL. [Concomitant]
     Active Substance: LISINOPRIL
     Indication: BLOOD PRESSURE INCREASED
     Dosage: 10 MG, 1X/DAY (10MG AT BEDTIME)
     Dates: start: 2017
  10. GABAPENTIN. [Suspect]
     Active Substance: GABAPENTIN
     Dosage: 3600 MG, DAILY (400MG BY MOUTH?1 CAPSULE AT 8AM,12PM,4PM AND 6 CAPSULES (2400MG) AT BEDTIME DAILY)
  11. GABAPENTIN. [Suspect]
     Active Substance: GABAPENTIN
     Dosage: 7 DF, 4X/DAY [400 MG CAPSULE 1 CAPSULE AT 8 AM, NOONTIME, AND 4 PM WITH 4 AT BEDTIME ORALLY 4 TIMES
     Route: 048
  12. COUMADIN [Concomitant]
     Active Substance: WARFARIN SODIUM
     Indication: ATRIAL FIBRILLATION
     Dosage: UNK

REACTIONS (5)
  - Visual impairment [Unknown]
  - Myoclonus [Unknown]
  - Drug ineffective for unapproved indication [Unknown]
  - Weight increased [Unknown]
  - Off label use [Unknown]

NARRATIVE: CASE EVENT DATE: 2018
